FAERS Safety Report 4768306-4 (Version None)
Quarter: 2005Q3

REPORT INFORMATION
  Report Type: 
  Country: None (occurrence: None)
  Receive Date: 20050906
  Receipt Date: 20050603
  Transmission Date: 20060218
  Serious: No
  Sender: FDA-Public Use
  Company Number: 2004-BP-04259BP

PATIENT
  Sex: Female

DRUGS (4)
  1. SPIRIVA [Suspect]
     Indication: CHRONIC OBSTRUCTIVE PULMONARY DISEASE
     Dosage: 18 MCG (18 MCG, QD) , IH
     Route: 055
     Dates: start: 20040526
  2. SPIRIVA [Suspect]
     Indication: EMPHYSEMA
     Dosage: 18 MCG (18 MCG, QD) , IH
     Route: 055
     Dates: start: 20040526
  3. PULMICORT [Concomitant]
  4. ATROVENT [Concomitant]

REACTIONS (3)
  - DYSPHONIA [None]
  - DYSPNOEA [None]
  - PALPITATIONS [None]
